FAERS Safety Report 10210934 (Version 1)
Quarter: 2014Q2

REPORT INFORMATION
  Report Type: Spontaneous
  Country: US (occurrence: None)
  Receive Date: 20140530
  Receipt Date: 20140530
  Transmission Date: 20141212
  Serious: Yes (Other)
  Sender: FDA-Public Use
  Company Number: None

PATIENT
  Age: 64 Year
  Sex: Female
  Weight: 74.39 kg

DRUGS (8)
  1. LETROZOLE [Suspect]
     Indication: BREAST CANCER
     Dosage: 2.5 MG, 1 PILL, DAILY, BY MOUTH
     Route: 048
     Dates: start: 20140111, end: 20140507
  2. LISINOPRIL 2.5MG [Concomitant]
  3. CAL-MAG-ZINC [Concomitant]
  4. VITD [Concomitant]
  5. WOMENS MULTI VITAMIN [Concomitant]
  6. VIT B COMPLEX WITH C [Concomitant]
  7. FOLIC ACID [Concomitant]
  8. POTASSIUM [Concomitant]

REACTIONS (4)
  - Recurrent cancer [None]
  - Inflammation [None]
  - Product substitution issue [None]
  - Cardiac disorder [None]
